FAERS Safety Report 20678272 (Version 2)
Quarter: 2022Q2

REPORT INFORMATION
  Report Type: Spontaneous
  Country: DE (occurrence: DE)
  Receive Date: 20220406
  Receipt Date: 20220606
  Transmission Date: 20220721
  Serious: Yes (Other)
  Sender: FDA-Public Use
  Company Number: DE-NOVARTISPH-NVSC2022DE076811

PATIENT
  Age: 42 Year
  Sex: Female
  Weight: 73.5 kg

DRUGS (4)
  1. SANDOSTATIN LAR DEPOT [Suspect]
     Active Substance: OCTREOTIDE ACETATE
     Indication: Acromegaly
     Dosage: 40 MG, QMO (1 X MONTHLY/4 WEEKS)
     Route: 065
     Dates: start: 20100607, end: 2015
  2. SANDOSTATIN LAR DEPOT [Suspect]
     Active Substance: OCTREOTIDE ACETATE
     Dosage: 20 MG, QMO (1 X MONTHLY/4 WEEKS)
     Route: 065
     Dates: start: 2015
  3. SANDOSTATIN LAR DEPOT [Suspect]
     Active Substance: OCTREOTIDE ACETATE
  4. DROSPIRENONE\ETHINYL ESTRADIOL [Suspect]
     Active Substance: DROSPIRENONE\ETHINYL ESTRADIOL
     Indication: Luteinising hormone deficiency
     Dosage: UNK
     Route: 065
     Dates: start: 2007, end: 20220324

REACTIONS (2)
  - Deep vein thrombosis [Recovering/Resolving]
  - Headache [Unknown]

NARRATIVE: CASE EVENT DATE: 20150101
